FAERS Safety Report 8473701-6 (Version None)
Quarter: 2012Q2

REPORT INFORMATION
  Report Type: 
  Country: None (occurrence: None)
  Receive Date: 20120628
  Receipt Date: 20111014
  Transmission Date: 20120825
  Serious: Yes (Other)
  Sender: FDA-Public Use
  Company Number: US-MYLANLABS-2011S1019156

PATIENT
  Age: 48 Year
  Sex: Male
  Weight: 105.14 kg

DRUGS (6)
  1. CLOZAPINE [Suspect]
     Route: 048
     Dates: end: 20110907
  2. CLOZAPINE [Suspect]
     Indication: SCHIZOPHRENIA, PARANOID TYPE
     Route: 048
     Dates: end: 20110907
  3. LIPITOR [Concomitant]
  4. MOM [Concomitant]
  5. PROZAC [Concomitant]
  6. SENNA-MINT WAF [Concomitant]

REACTIONS (2)
  - GRANULOCYTOPENIA [None]
  - LEUKOPENIA [None]
